FAERS Safety Report 4775454-1 (Version None)
Quarter: 2005Q3

REPORT INFORMATION
  Report Type: 
  Country: None (occurrence: None)
  Receive Date: 20050914
  Receipt Date: 20050314
  Transmission Date: 20060218
  Serious: Yes (Other)
  Sender: FDA-Public Use
  Company Number: 163-20785-05030356

PATIENT
  Sex: Female

DRUGS (1)
  1. THALOMID [Suspect]
     Indication: PSORIASIS
     Dosage: ORAL
     Route: 048

REACTIONS (2)
  - DEPRESSION [None]
  - DIPLOPIA [None]
